FAERS Safety Report 5552848-8 (Version None)
Quarter: 2007Q4

REPORT INFORMATION
  Report Type: 
  Country: None (occurrence: None)
  Receive Date: 20071212
  Receipt Date: 20070625
  Transmission Date: 20080405
  Serious: No
  Sender: FDA-Public Use
  Company Number: US-AMGEN-KDL231132

PATIENT
  Sex: Female

DRUGS (3)
  1. ENBREL [Suspect]
     Indication: RHEUMATOID ARTHRITIS
     Route: 058
     Dates: start: 19980501
  2. ENBREL [Suspect]
     Indication: MYASTHENIA GRAVIS
  3. METHOTREXATE [Concomitant]
     Route: 048
     Dates: start: 19960101

REACTIONS (6)
  - ARTHRALGIA [None]
  - BACK PAIN [None]
  - FALL [None]
  - RESPIRATORY TRACT CONGESTION [None]
  - SINUSITIS [None]
  - SPINAL COMPRESSION FRACTURE [None]
